FAERS Safety Report 22823992 (Version 11)
Quarter: 2023Q4

REPORT INFORMATION
  Report Type: Spontaneous
  Country: CA (occurrence: CA)
  Receive Date: 20230815
  Receipt Date: 20231027
  Transmission Date: 20240110
  Serious: Yes (Hospitalization, Other)
  Sender: FDA-Public Use
  Company Number: CA-PFIZER INC-202300275189

PATIENT
  Age: 72 Year
  Sex: Male

DRUGS (8)
  1. XELJANZ [Suspect]
     Active Substance: TOFACITINIB CITRATE
     Indication: Colitis ulcerative
     Dosage: 10 MG, 2X/DAY (MAINTENANCE 5MG BID)
     Route: 048
     Dates: start: 20230721, end: 2023
  2. XELJANZ [Suspect]
     Active Substance: TOFACITINIB CITRATE
     Dosage: 5 MG, 2X/DAY
     Route: 048
     Dates: start: 2023
  3. PREDNISONE [Concomitant]
     Active Substance: PREDNISONE
     Dosage: 25 MG
     Route: 048
  4. PREDNISONE [Concomitant]
     Active Substance: PREDNISONE
     Dosage: 27.5 MG (HE DID TAPER HIS PREDNISONE BY 2.5 AND IS NOW TAKING 27.5 SINCE SUNDAY 27AUG2023)
     Route: 048
     Dates: start: 20230827
  5. PREDNISONE [Concomitant]
     Active Substance: PREDNISONE
     Dosage: TAPER IS AT 22.5 (UNITS NOT PROVIDED) AS OF TODAY
  6. PREDNISONE [Concomitant]
     Active Substance: PREDNISONE
     Dosage: 20 MG, DAILY (PLANS TO TAPER DOWN TO 17.5 MG STARTING TOMORROW)
  7. PREDNISONE [Concomitant]
     Active Substance: PREDNISONE
     Dosage: 25 MG
     Route: 048
  8. PREDNISONE [Concomitant]
     Active Substance: PREDNISONE
     Dosage: 15 MG
     Route: 048

REACTIONS (10)
  - Anal abscess [Recovering/Resolving]
  - Furuncle [Not Recovered/Not Resolved]
  - Colectomy [Not Recovered/Not Resolved]
  - Haemorrhoids [Recovered/Resolved]
  - Crohn^s disease [Not Recovered/Not Resolved]
  - Back pain [Unknown]
  - Obstructive defaecation [Recovered/Resolved]
  - Swelling [Recovering/Resolving]
  - Faecal calprotectin increased [Not Recovered/Not Resolved]
  - Weight increased [Unknown]

NARRATIVE: CASE EVENT DATE: 20230101
